FAERS Safety Report 10457821 (Version 3)
Quarter: 2015Q1

REPORT INFORMATION
  Report Type: Spontaneous
  Country: US (occurrence: US)
  Receive Date: 20140916
  Receipt Date: 20150323
  Transmission Date: 20150720
  Serious: Yes (Hospitalization, Other)
  Sender: FDA-Public Use
  Company Number: US-GLAXOSMITHKLINE-A1088829A

PATIENT
  Age: 65 Year
  Sex: Female

DRUGS (1)
  1. SORIATANE [Suspect]
     Active Substance: ACITRETIN
     Indication: KERATOSIS FOLLICULAR
     Dosage: 1 DF, QOD
     Route: 065
     Dates: start: 2009

REACTIONS (10)
  - Pain [Recovered/Resolved]
  - Salivary gland operation [Recovered/Resolved]
  - Wrist fracture [Unknown]
  - Mastication disorder [Recovered/Resolved]
  - Hypertension [Unknown]
  - Memory impairment [Not Recovered/Not Resolved]
  - Trismus [Recovered/Resolved]
  - Skin disorder [Not Recovered/Not Resolved]
  - Cerebrovascular accident [Recovered/Resolved with Sequelae]
  - Salivary gland mass [Recovering/Resolving]

NARRATIVE: CASE EVENT DATE: 201406
